FAERS Safety Report 25469383 (Version 1)
Quarter: 2025Q2

REPORT INFORMATION
  Report Type: Spontaneous
  Country: PT (occurrence: PT)
  Receive Date: 20250623
  Receipt Date: 20250623
  Transmission Date: 20250716
  Serious: Yes (Life-Threatening)
  Sender: BAUSCH AND LOMB
  Company Number: PT-LOOKAHEAD-00004

PATIENT
  Age: 66 Year
  Sex: Male

DRUGS (1)
  1. DICLOFENAC [Suspect]
     Active Substance: DICLOFENAC
     Indication: Musculoskeletal pain
     Route: 065

REACTIONS (2)
  - Kounis syndrome [Unknown]
  - Anaphylactic reaction [Unknown]
